FAERS Safety Report 12703332 (Version 1)
Quarter: 2016Q3

REPORT INFORMATION
  Report Type: Spontaneous
  Country: CN (occurrence: CN)
  Receive Date: 20160831
  Receipt Date: 20160831
  Transmission Date: 20161109
  Serious: Yes (Other)
  Sender: FDA-Public Use
  Company Number: CN-009507513-1608CHN014080

PATIENT
  Age: 44 Year
  Sex: Male
  Weight: 70 kg

DRUGS (4)
  1. ZOCOR [Suspect]
     Active Substance: SIMVASTATIN
     Indication: HYPERLIPIDAEMIA
     Dosage: 20 MG, QD
     Route: 048
     Dates: start: 20160411, end: 20160418
  2. ASPIRIN. [Concomitant]
     Active Substance: ASPIRIN
     Indication: PLATELET AGGREGATION INHIBITION
     Dosage: 0.1 G, QD
     Route: 048
     Dates: start: 20160411, end: 20160420
  3. GINKGO [Concomitant]
     Active Substance: GINKGO
     Indication: PROPHYLAXIS
  4. GINKGO [Concomitant]
     Active Substance: GINKGO
     Indication: PROMOTION OF PERIPHERAL CIRCULATION
     Dosage: 2 DF, TID
     Route: 048
     Dates: start: 20160411, end: 20160420

REACTIONS (2)
  - Myocardial necrosis marker increased [Recovering/Resolving]
  - Myalgia [Recovering/Resolving]

NARRATIVE: CASE EVENT DATE: 20160418
